APPROVED DRUG PRODUCT: IOSAT
Active Ingredient: POTASSIUM IODIDE
Strength: 65MG
Dosage Form/Route: TABLET;ORAL
Application: N018664 | Product #002
Applicant: ANBEX INC
Approved: May 12, 2011 | RLD: Yes | RS: No | Type: OTC